FAERS Safety Report 7338241-6 (Version None)
Quarter: 2011Q1

REPORT INFORMATION
  Report Type: 
  Country: None (occurrence: None)
  Receive Date: 20110308
  Receipt Date: 20110303
  Transmission Date: 20110831
  Serious: Yes (Death)
  Sender: FDA-Public Use
  Company Number: GXKR2010JP06303

PATIENT
  Sex: Male
  Weight: 44 kg

DRUGS (4)
  1. ISONIAZID [Suspect]
     Indication: PULMONARY TUBERCULOSIS
     Dosage: 300 MG, UNK
     Route: 048
     Dates: start: 20100201
  2. PYRAZINAMIDE [Suspect]
     Indication: PULMONARY TUBERCULOSIS
     Dosage: 1.5 G, UNK
     Route: 048
     Dates: start: 20100201, end: 20100205
  3. EBUTOL [Suspect]
     Indication: PULMONARY TUBERCULOSIS
     Dosage: UNK
     Route: 048
     Dates: start: 20100201, end: 20100415
  4. RIFAMPICIN [Suspect]
     Indication: PULMONARY TUBERCULOSIS
     Dosage: 450 MG, UNK
     Route: 048
     Dates: start: 20100201, end: 20100513

REACTIONS (5)
  - HEPATIC FUNCTION ABNORMAL [None]
  - RENAL IMPAIRMENT [None]
  - JAUNDICE [None]
  - ANTINEUTROPHIL CYTOPLASMIC ANTIBODY POSITIVE [None]
  - BLOOD BILIRUBIN INCREASED [None]
